FAERS Safety Report 6136039-8 (Version None)
Quarter: 2009Q1

REPORT INFORMATION
  Report Type: 
  Country: None (occurrence: None)
  Receive Date: 20090325
  Receipt Date: 20090308
  Transmission Date: 20090719
  Serious: Yes (Hospitalization)
  Sender: FDA-Public Use
  Company Number: 2006S1003216

PATIENT
  Age: 84 Year
  Sex: Female
  Weight: 58.9676 kg

DRUGS (6)
  1. PHOSPHOSODA GINGER LEMON [Suspect]
     Indication: COLONOSCOPY
     Dosage: 90 ML;TOTAL;PO
     Route: 048
     Dates: start: 20030916, end: 20030917
  2. ASPIRIN [Concomitant]
  3. PEPCID [Concomitant]
  4. PRILOSEC [Concomitant]
  5. LEVAQUIN [Concomitant]
  6. MYLANTA [Concomitant]

REACTIONS (5)
  - COLD SWEAT [None]
  - DIALYSIS [None]
  - NEPHROCALCINOSIS [None]
  - RENAL FAILURE CHRONIC [None]
  - VOMITING [None]
